FAERS Safety Report 9278983 (Version 1)
Quarter: 2013Q2

REPORT INFORMATION
  Report Type: Spontaneous
  Country: NZ (occurrence: NZ)
  Receive Date: 20130508
  Receipt Date: 20130508
  Transmission Date: 20140414
  Serious: Yes (Other)
  Sender: FDA-Public Use
  Company Number: NZ-GLAXOSMITHKLINE-B0885903A

PATIENT
  Age: 45 Year
  Sex: Female

DRUGS (1)
  1. RELENZA [Suspect]
     Indication: INFLUENZA LIKE ILLNESS
     Route: 065
     Dates: start: 20130410, end: 20130415

REACTIONS (1)
  - Expired drug administered [Not Recovered/Not Resolved]
